FAERS Safety Report 14223165 (Version 2)
Quarter: 2017Q4

REPORT INFORMATION
  Report Type: Report from Study
  Country: None (occurrence: CO)
  Receive Date: 20171124
  Receipt Date: 20171215
  Transmission Date: 20180321
  Serious: Yes (Other)
  Sender: FDA-Public Use
  Company Number: CO-ABBVIE-17K-036-2173492-00

PATIENT
  Age: 62 Year
  Sex: Female
  Weight: 78 kg

DRUGS (2)
  1. LEFLUNOMIDE. [Concomitant]
     Active Substance: LEFLUNOMIDE
     Indication: PRODUCT USED FOR UNKNOWN INDICATION
  2. HUMIRA [Suspect]
     Active Substance: ADALIMUMAB
     Indication: RHEUMATOID ARTHRITIS
     Route: 058
     Dates: start: 20150708, end: 20171025

REACTIONS (5)
  - Blindness unilateral [Recovering/Resolving]
  - Conjunctivitis [Unknown]
  - Vitreous opacities [Unknown]
  - Corneal deposits [Unknown]
  - Choroidal sclerosis [Unknown]

NARRATIVE: CASE EVENT DATE: 20160707
